FAERS Safety Report 6623564-6 (Version None)
Quarter: 2010Q1

REPORT INFORMATION
  Report Type: 
  Country: None (occurrence: None)
  Receive Date: 20100310
  Receipt Date: 20100302
  Transmission Date: 20100710
  Serious: Yes (Other)
  Sender: FDA-Public Use
  Company Number: US-PFIZER INC-2010027068

PATIENT
  Sex: Male
  Weight: 113.38 kg

DRUGS (18)
  1. LIPITOR [Suspect]
     Indication: CARDIAC DISORDER
     Dosage: 20 MG, 1X/DAY
     Route: 048
     Dates: start: 20040101
  2. PRILOSEC [Concomitant]
     Indication: DYSPEPSIA
     Dosage: UNK
     Route: 048
  3. PLAVIX [Concomitant]
     Indication: CARDIAC DISORDER
     Dosage: 75 MG, 1X/DAY
     Route: 048
  4. MOTRIN [Concomitant]
     Indication: PHLEBITIS
     Dosage: 800 MG, AS NEEDED
     Route: 048
  5. MOTRIN [Concomitant]
     Indication: LOWER LIMB FRACTURE
  6. MOTRIN [Concomitant]
     Indication: OEDEMA PERIPHERAL
  7. MOTRIN [Concomitant]
     Indication: ANKLE FRACTURE
  8. ACETYLSALICYLIC ACID [Concomitant]
     Indication: PHLEBITIS
     Dosage: 325 MG, 1X/DAY
     Route: 048
  9. ACETYLSALICYLIC ACID [Concomitant]
     Indication: LOWER LIMB FRACTURE
  10. ACETYLSALICYLIC ACID [Concomitant]
     Indication: ANKLE FRACTURE
  11. ACETYLSALICYLIC ACID [Concomitant]
     Indication: OEDEMA PERIPHERAL
  12. ACETYLSALICYLIC ACID [Concomitant]
     Indication: HEADACHE
  13. OS-CAL [Concomitant]
     Indication: BONE DISORDER
     Dosage: 500MG//200UNITS 3X/DAY
     Route: 048
  14. METOPROLOL [Concomitant]
     Indication: BLOOD PRESSURE
     Dosage: 100 MG, 2X/DAY
     Route: 048
  15. ENALAPRIL MALEATE [Concomitant]
     Indication: BLOOD PRESSURE
     Dosage: 20 MG, 2X/DAY
     Route: 048
  16. CENTRUM [Concomitant]
     Indication: SUPPLEMENTATION THERAPY
     Dosage: UNK
  17. PROMETHAZINE [Concomitant]
     Indication: COUGH
     Dosage: UNK
  18. FLUOROMETHOLONE [Concomitant]
     Indication: EYE DISORDER
     Dosage: UNK

REACTIONS (6)
  - ARTHRALGIA [None]
  - DYSPNOEA [None]
  - FATIGUE [None]
  - MYALGIA [None]
  - PAIN [None]
  - PAIN IN EXTREMITY [None]
